FAERS Safety Report 6379966-9 (Version None)
Quarter: 2009Q3

REPORT INFORMATION
  Report Type: 
  Country: None (occurrence: None)
  Receive Date: 20090928
  Receipt Date: 20090922
  Transmission Date: 20100115
  Serious: Yes (Other)
  Sender: FDA-Public Use
  Company Number: US-AMGEN-US365855

PATIENT
  Sex: Female
  Weight: 70.4 kg

DRUGS (23)
  1. ENBREL [Suspect]
     Indication: RHEUMATOID ARTHRITIS
     Route: 058
     Dates: start: 20080617, end: 20080718
  2. MULTI-VITAMINS [Concomitant]
     Route: 048
     Dates: start: 20080721, end: 20080917
  3. CAFFEINE CITRATE [Concomitant]
     Route: 048
     Dates: start: 20080617, end: 20080827
  4. CAFFEINE CITRATE [Concomitant]
     Route: 048
     Dates: start: 20090121, end: 20090121
  5. OXYCODONE HCL [Concomitant]
     Route: 048
     Dates: start: 20080703, end: 20080819
  6. MORPHINE [Concomitant]
     Route: 048
     Dates: start: 20080617, end: 20080819
  7. ALBUTEROL [Concomitant]
     Route: 055
     Dates: start: 20080617, end: 20080806
  8. METROGEL [Concomitant]
     Route: 065
     Dates: start: 20080826, end: 20080901
  9. TYLENOL (CAPLET) [Concomitant]
     Route: 048
     Dates: start: 20080617, end: 20090402
  10. TUMS [Concomitant]
     Route: 048
     Dates: start: 20080617, end: 20090116
  11. BENADRYL [Concomitant]
     Route: 048
     Dates: start: 20080617, end: 20090113
  12. BENADRYL [Concomitant]
     Route: 048
     Dates: start: 20090114, end: 20090225
  13. VITAMIN TAB [Concomitant]
     Route: 048
     Dates: start: 20080918, end: 20090402
  14. AZITHROMYCIN [Concomitant]
     Route: 061
     Dates: start: 20081006, end: 20081013
  15. PREDNISONE TAB [Concomitant]
     Route: 048
     Dates: start: 20081010, end: 20081102
  16. PREDNISONE TAB [Concomitant]
     Route: 048
     Dates: start: 20081103, end: 20081217
  17. PREDNISONE TAB [Concomitant]
     Route: 048
     Dates: start: 20090121, end: 20090125
  18. SIMETHICONE [Concomitant]
     Route: 048
     Dates: start: 20080721, end: 20080721
  19. TOBRADEX [Concomitant]
     Route: 061
     Dates: start: 20080909, end: 20080926
  20. PEPCID [Concomitant]
     Route: 048
     Dates: start: 20090116, end: 20090402
  21. COLACE [Concomitant]
     Route: 048
     Dates: start: 20090116, end: 20090402
  22. MACROBID [Concomitant]
     Route: 048
     Dates: start: 20090224, end: 20090228
  23. TERCONAZOLE [Concomitant]
     Route: 067
     Dates: start: 20090224, end: 20090302

REACTIONS (2)
  - HAEMORRHAGE [None]
  - STAPHYLOCOCCAL INFECTION [None]
